FAERS Safety Report 7363632-7 (Version None)
Quarter: 2011Q1

REPORT INFORMATION
  Report Type: 
  Country: None (occurrence: None)
  Receive Date: 20110321
  Receipt Date: 20110311
  Transmission Date: 20110831
  Serious: Yes (Other)
  Sender: FDA-Public Use
  Company Number: US-PFIZER INC-2007036870

PATIENT
  Sex: Female

DRUGS (2)
  1. NEURONTIN [Suspect]
     Indication: HEADACHE
     Dosage: UNK
  2. NEURONTIN [Suspect]
     Indication: PAIN IN EXTREMITY

REACTIONS (7)
  - AMNESIA [None]
  - HOMICIDAL IDEATION [None]
  - HYPERTENSION [None]
  - DRUG INEFFECTIVE FOR UNAPPROVED INDICATION [None]
  - SUICIDAL IDEATION [None]
  - THINKING ABNORMAL [None]
  - DIZZINESS [None]
